FAERS Safety Report 4550087-0 (Version None)
Quarter: 2005Q1

REPORT INFORMATION
  Report Type: 
  Country: None (occurrence: None)
  Receive Date: 20050111
  Receipt Date: 20050111
  Transmission Date: 20050727
  Serious: Yes (Other)
  Sender: FDA-Public Use
  Company Number: None

PATIENT
  Age: 57 Year
  Sex: Male
  Weight: 78.0187 kg

DRUGS (3)
  1. AREDIA [Suspect]
     Indication: MULTIPLE MYELOMA
     Dosage: 90 MG IV MONTHLY
     Route: 042
     Dates: start: 19980101, end: 20020101
  2. ZOMETA [Suspect]
     Indication: MULTIPLE MYELOMA
     Dosage: 4 MG IV MONTHLY
     Route: 042
     Dates: start: 20020101, end: 20041001
  3. DEXAMETHASONE [Concomitant]

REACTIONS (2)
  - BONE DISORDER [None]
  - ORAL MUCOSAL DISORDER [None]
